FAERS Safety Report 6269289-0 (Version None)
Quarter: 2009Q3

REPORT INFORMATION
  Report Type: 
  Country: None (occurrence: None)
  Receive Date: 20090715
  Receipt Date: 20090708
  Transmission Date: 20100115
  Serious: Yes (Hospitalization, Other)
  Sender: FDA-Public Use
  Company Number: PHHY2009HR28094

PATIENT
  Age: 62 Year
  Sex: Female

DRUGS (3)
  1. CYCLOSPORINE [Suspect]
     Indication: RENAL TRANSPLANT
     Dosage: UNK
  2. MYCOPHENOLATE MOFETIL [Suspect]
     Indication: RENAL TRANSPLANT
     Dosage: 2 X 1000 MG
  3. PREDNISOLONE [Suspect]
     Indication: RENAL TRANSPLANT
     Dosage: UNK

REACTIONS (15)
  - BLOOD PRESSURE DECREASED [None]
  - CYTOMEGALOVIRUS INFECTION [None]
  - DECREASED APPETITE [None]
  - DIALYSIS [None]
  - EPSTEIN-BARR VIRUS ASSOCIATED LYMPHOPROLIFERATIVE DISORDER [None]
  - HAEMATOCRIT DECREASED [None]
  - HAEMORRHAGE [None]
  - MALAISE [None]
  - NEPHROURETERECTOMY [None]
  - NIGHT SWEATS [None]
  - PYREXIA [None]
  - RENAL IMPAIRMENT [None]
  - RENAL LYMPHOCELE [None]
  - TENDERNESS [None]
  - WEIGHT DECREASED [None]
